FAERS Safety Report 25337959 (Version 1)
Quarter: 2025Q2

REPORT INFORMATION
  Report Type: Spontaneous
  Country: US (occurrence: US)
  Receive Date: 20250520
  Receipt Date: 20250520
  Transmission Date: 20250717
  Serious: No
  Sender: CALLIDITAS THERAPEUTICS AB
  Company Number: US-Calliditas-2025CAL01247

PATIENT
  Age: 35 Year
  Sex: Female

DRUGS (2)
  1. TARPEYO [Suspect]
     Active Substance: BUDESONIDE
     Indication: IgA nephropathy
     Route: 048
     Dates: start: 202410, end: 202502
  2. TARPEYO [Suspect]
     Active Substance: BUDESONIDE
     Indication: IgA nephropathy
     Route: 048
     Dates: start: 202502, end: 202504

REACTIONS (4)
  - Headache [Unknown]
  - Prescribed underdose [Unknown]
  - Nausea [Unknown]
  - Therapy cessation [Unknown]
